FAERS Safety Report 13582733 (Version 5)
Quarter: 2018Q4

REPORT INFORMATION
  Report Type: Spontaneous
  Country: IN (occurrence: IN)
  Receive Date: 20170525
  Receipt Date: 20181024
  Transmission Date: 20190204
  Serious: Yes (Other)
  Sender: FDA-Public Use
  Company Number: IN-PFIZER INC-2017224965

PATIENT
  Age: 55 Year
  Sex: Female

DRUGS (5)
  1. ORETA [Concomitant]
     Dosage: 2.5 MG, 1X/DAY
  2. PALBACE [Suspect]
     Active Substance: PALBOCICLIB
     Dosage: 125 MG, CYCLIC (OD X21 DAYS. STOP FOR 1 WEEK)
     Route: 048
     Dates: start: 20171230
  3. VITAMIN D /00107901/ [Concomitant]
     Active Substance: ERGOCALCIFEROL
     Dosage: 1 DF, 2X/DAY
  4. PALBACE [Suspect]
     Active Substance: PALBOCICLIB
     Indication: INVASIVE DUCTAL BREAST CARCINOMA
     Dosage: 125 MG, 1X/DAY
     Route: 048
     Dates: start: 20170425, end: 20170516
  5. LETROZOLE. [Concomitant]
     Active Substance: LETROZOLE
     Dosage: 2.5 MG, UNK

REACTIONS (11)
  - Fatigue [Unknown]
  - Throat irritation [Unknown]
  - Insomnia [Unknown]
  - Platelet count decreased [Unknown]
  - Depression [Unknown]
  - Cough [Unknown]
  - White blood cell count decreased [Unknown]
  - Gait inability [Unknown]
  - Interstitial lung disease [Unknown]
  - Blood glucose increased [Unknown]
  - Blood urea increased [Unknown]

NARRATIVE: CASE EVENT DATE: 20180101
